FAERS Safety Report 5792228-3 (Version None)
Quarter: 2008Q2

REPORT INFORMATION
  Report Type: 
  Country: None (occurrence: None)
  Receive Date: 20080626
  Receipt Date: 20080229
  Transmission Date: 20081010
  Serious: No
  Sender: FDA-Public Use
  Company Number: US-ASTRAZENECA-2008UW04205

PATIENT
  Age: 75 Year
  Sex: Male

DRUGS (6)
  1. PULMICORT RESPULES [Suspect]
     Indication: ASTHMA
     Route: 055
  2. PULMICORT RESPULES [Suspect]
     Indication: CHRONIC OBSTRUCTIVE PULMONARY DISEASE
     Route: 055
  3. IPRATROPIUM BROMIDE [Concomitant]
  4. XOPENEX [Concomitant]
  5. ALBUTEROL [Concomitant]
  6. OXYGEN [Concomitant]

REACTIONS (2)
  - DRY MOUTH [None]
  - WHEEZING [None]
